FAERS Safety Report 4510958-8 (Version None)
Quarter: 2004Q4

REPORT INFORMATION
  Report Type: 
  Country: None (occurrence: None)
  Receive Date: 20040928
  Receipt Date: 20040604
  Transmission Date: 20050328
  Serious: No
  Sender: FDA-Public Use
  Company Number: 04P-163-0262813-00

PATIENT
  Age: 82 Year
  Sex: Female
  Weight: 65.7716 kg

DRUGS (8)
  1. HUMIRA [Suspect]
     Indication: RHEUMATOID ARTHRITIS
     Dosage: 40 MG, 1 IN 2 WK, SUBCUTANEOUS
     Route: 058
     Dates: start: 20030101, end: 20040401
  2. HUMIRA [Suspect]
     Indication: RHEUMATOID ARTHRITIS
     Dosage: 40 MG, 1 IN 2 WK, SUBCUTANEOUS
     Route: 058
     Dates: start: 20040501
  3. AMLODIPINE BESYLATE [Concomitant]
  4. PREDNISONE [Concomitant]
  5. DOXAZOSIN [Concomitant]
  6. BUCINDOLOL [Concomitant]
  7. LANSOPRAZOLE [Concomitant]
  8. ALENDRONATE SODIUM [Concomitant]

REACTIONS (1)
  - BRONCHIAL INFECTION [None]
